FAERS Safety Report 12521629 (Version 1)
Quarter: 2016Q3

REPORT INFORMATION
  Report Type: Spontaneous
  Country: US (occurrence: US)
  Receive Date: 20160701
  Receipt Date: 20160701
  Transmission Date: 20161109
  Serious: Yes (Hospitalization)
  Sender: FDA-Public Use
  Company Number: US-INDIVIOR LIMITED-INDV-091771-2016

PATIENT
  Sex: Male

DRUGS (3)
  1. SUBOXONE [Suspect]
     Active Substance: BUPRENORPHINE HYDROCHLORIDE\NALOXONE HYDROCHLORIDE
     Dosage: CUT THE FILM AND TAPER HIS DOSE, UNK
     Route: 060
     Dates: end: 20160624
  2. BUPRENORPHINE/NALOXONE GENERIC [Suspect]
     Active Substance: BUPRENORPHINE\NALOXONE
     Indication: DRUG DEPENDENCE
     Dosage: 2MG, TWICE A DAY
     Route: 060
     Dates: start: 20160625
  3. SUBOXONE [Suspect]
     Active Substance: BUPRENORPHINE HYDROCHLORIDE\NALOXONE HYDROCHLORIDE
     Indication: DRUG DEPENDENCE
     Dosage: 24MG, DAILY
     Route: 060
     Dates: start: 201407

REACTIONS (5)
  - Condition aggravated [Not Recovered/Not Resolved]
  - Head discomfort [Recovered/Resolved]
  - Emphysema [Not Recovered/Not Resolved]
  - Drug intolerance [Recovered/Resolved]
  - Product preparation error [Recovered/Resolved]

NARRATIVE: CASE EVENT DATE: 20160625
